FAERS Safety Report 6357109-5 (Version None)
Quarter: 2009Q3

REPORT INFORMATION
  Report Type: 
  Country: None (occurrence: None)
  Receive Date: 20090915
  Receipt Date: 20090908
  Transmission Date: 20100115
  Serious: Yes (Hospitalization)
  Sender: FDA-Public Use
  Company Number: US-MERCK-0909USA01265

PATIENT

DRUGS (3)
  1. DECADRON [Suspect]
     Route: 048
  2. THALIDOMIDE [Suspect]
     Route: 065
  3. MELOXICAM [Suspect]
     Route: 065

REACTIONS (1)
  - ACUTE GENERALISED EXANTHEMATOUS PUSTULOSIS [None]
